FAERS Safety Report 8069410-8 (Version None)
Quarter: 2012Q1

REPORT INFORMATION
  Report Type: 
  Country: None (occurrence: None)
  Receive Date: 20120125
  Receipt Date: 20120123
  Transmission Date: 20120608
  Serious: Yes (Hospitalization, Other)
  Sender: FDA-Public Use
  Company Number: JP-JNJFOC-20101108379

PATIENT
  Sex: Male

DRUGS (9)
  1. PREZISTA [Suspect]
     Route: 048
     Dates: start: 20060905, end: 20080331
  2. CROSS EIGHT M [Concomitant]
     Indication: FACTOR VIII DEFICIENCY
     Dosage: DOSE GIVEN ONCE 1/3 DAYS
     Route: 042
     Dates: start: 20070401
  3. ISENTRESS [Concomitant]
     Indication: HIV INFECTION
     Route: 048
     Dates: start: 20070423
  4. ZITHROMAX [Concomitant]
     Indication: PROPHYLAXIS
     Route: 048
     Dates: start: 20070401, end: 20070807
  5. PREZISTA [Suspect]
     Indication: HIV INFECTION
     Route: 048
     Dates: start: 20080401
  6. SULFAMETHOXAZOLE [Concomitant]
     Indication: PROPHYLAXIS
     Route: 048
     Dates: start: 20070401, end: 20071106
  7. NORVIR [Concomitant]
     Indication: HIV INFECTION
     Route: 048
     Dates: start: 20070401
  8. TRUVADA [Concomitant]
     Indication: HIV INFECTION
     Route: 048
     Dates: start: 20070401
  9. ISENTRESS [Concomitant]
     Indication: HIV INFECTION
     Dates: start: 20070423

REACTIONS (8)
  - MALAISE [None]
  - LIVER FUNCTION TEST ABNORMAL [None]
  - BLOOD TRIGLYCERIDES INCREASED [None]
  - HEPATIC FUNCTION ABNORMAL [None]
  - BRADYCARDIA [None]
  - ABDOMINAL DISTENSION [None]
  - ATRIOVENTRICULAR BLOCK SECOND DEGREE [None]
  - ANAEMIA [None]
